FAERS Safety Report 8446402-8 (Version None)
Quarter: 2012Q2

REPORT INFORMATION
  Report Type: 
  Country: None (occurrence: None)
  Receive Date: 20120618
  Receipt Date: 20120207
  Transmission Date: 20120825
  Serious: Yes (Other)
  Sender: FDA-Public Use
  Company Number: US-TEVA-321749USA

PATIENT
  Sex: Female
  Weight: 46.308 kg

DRUGS (2)
  1. ACTIQ [Suspect]
     Indication: BREAKTHROUGH PAIN
     Route: 002
     Dates: start: 20050101
  2. FENTANYL-100 [Concomitant]
     Indication: PAIN
     Dosage: CHANGE PATCH QOD
     Route: 062
     Dates: start: 20030101

REACTIONS (3)
  - TOOTH LOSS [None]
  - WEIGHT DECREASED [None]
  - OFF LABEL USE [None]
